FAERS Safety Report 7531801-9 (Version None)
Quarter: 2011Q2

REPORT INFORMATION
  Report Type: 
  Country: None (occurrence: None)
  Receive Date: 20110608
  Receipt Date: 20110603
  Transmission Date: 20111010
  Serious: Yes (Death)
  Sender: FDA-Public Use
  Company Number: FR-ROCHE-780644

PATIENT
  Sex: Female

DRUGS (7)
  1. COPEGUS [Suspect]
     Indication: HEPATITIS C
     Route: 048
     Dates: start: 20101111, end: 20110307
  2. ZYPREXA [Suspect]
     Route: 048
     Dates: start: 20101001, end: 20110313
  3. ISENTRESS [Concomitant]
     Route: 048
     Dates: start: 20100502
  4. PEGASYS [Suspect]
     Indication: HEPATITIS C
     Route: 058
     Dates: start: 20101111, end: 20110303
  5. ZOPICLONE [Suspect]
     Route: 048
     Dates: start: 20101001, end: 20110312
  6. TRUVADA [Concomitant]
     Route: 048
     Dates: start: 20100502
  7. CITALOPRAM HYDROBROMIDE [Suspect]
     Route: 048
     Dates: start: 20101001, end: 20110312

REACTIONS (4)
  - DYSPNOEA [None]
  - GENERALISED OEDEMA [None]
  - CARDIAC FAILURE [None]
  - PULMONARY HYPERTENSION [None]
